FAERS Safety Report 23621007 (Version 1)
Quarter: 2024Q1

REPORT INFORMATION
  Report Type: Spontaneous
  Country: GB (occurrence: GB)
  Receive Date: 20240312
  Receipt Date: 20240312
  Transmission Date: 20240410
  Serious: Yes (Other)
  Sender: FDA-Public Use
  Company Number: None

PATIENT
  Age: 69 Year
  Sex: Female

DRUGS (12)
  1. MIRTAZAPINE [Suspect]
     Active Substance: MIRTAZAPINE
     Dosage: AT NIGHT, DURATION: 1 DAY
     Route: 065
     Dates: start: 20240221, end: 20240221
  2. PIZOTYLINE [Concomitant]
     Active Substance: PIZOTYLINE
     Dosage: 500MICROGRAM, ONE TO BE TAKEN AT NIGHT (TOTAL 3.5MG DAILY). 1.5MG, ONE TO BE TAKEN TWICE A DAY
  3. ISOSORBIDE MONONITRATE [Concomitant]
     Active Substance: ISOSORBIDE MONONITRATE
     Dosage: CHEMYDUR 60XL TABLETS (ONE TO BE TAKEN DAILY)
  4. CLOPIDOGREL [Concomitant]
     Active Substance: CLOPIDOGREL BISULFATE
     Dosage: IN THE MORNING
     Dates: start: 20240221
  5. LINAGLIPTIN [Concomitant]
     Active Substance: LINAGLIPTIN
     Dates: start: 20240221
  6. FAMOTIDINE [Suspect]
     Active Substance: FAMOTIDINE
     Route: 065
  7. METFORMIN [Concomitant]
     Active Substance: METFORMIN HYDROCHLORIDE
     Dosage: METFORMIN 500MG TABLETS, TAKE TWO TWICE A DAY - SWITCHED TO ORAL POWDER SACHETS
  8. SIMVASTATIN [Concomitant]
     Active Substance: SIMVASTATIN
     Dosage: AT NIGHT
  9. DOXAZOSIN [Concomitant]
     Active Substance: DOXAZOSIN MESYLATE
  10. PREGABALIN [Suspect]
     Active Substance: PREGABALIN
     Route: 065
  11. RAMIPRIL [Concomitant]
     Active Substance: RAMIPRIL
  12. GLICLAZIDE [Concomitant]
     Active Substance: GLICLAZIDE

REACTIONS (3)
  - Delirium [Unknown]
  - Somnolence [Unknown]
  - Confusional state [Unknown]
